FAERS Safety Report 6478232-0 (Version None)
Quarter: 2009Q4

REPORT INFORMATION
  Report Type: 
  Country: None (occurrence: None)
  Receive Date: 20091207
  Receipt Date: 20091130
  Transmission Date: 20100525
  Serious: Yes (Hospitalization, Other)
  Sender: FDA-Public Use
  Company Number: US-PFIZER INC-2008026765

PATIENT
  Sex: Female
  Weight: 64.853 kg

DRUGS (5)
  1. DILANTIN [Suspect]
     Indication: CONVULSION
     Dosage: 300 MG, 1X/DAY
  2. KEPPRA [Suspect]
     Indication: CONVULSION
     Dosage: UNK
  3. CLONAZEPAM [Suspect]
     Dosage: UNK
  4. HEPARIN [Suspect]
     Dosage: UNK
  5. ZONEGRAN [Concomitant]
     Dosage: 175 MG, UNK

REACTIONS (4)
  - ATRIAL FIBRILLATION [None]
  - CONVULSION [None]
  - ILL-DEFINED DISORDER [None]
  - UNEVALUABLE EVENT [None]
